FAERS Safety Report 15492863 (Version 1)
Quarter: 2018Q4

REPORT INFORMATION
  Report Type: Spontaneous
  Country: US (occurrence: US)
  Receive Date: 20180927
  Receipt Date: 20180927
  Transmission Date: 20190205
  Serious: Yes (Other)
  Sender: FDA-Public Use
  Company Number: None

PATIENT
  Age: 57 Year
  Sex: Female
  Weight: 69.85 kg

DRUGS (2)
  1. NEULASTA [Suspect]
     Active Substance: PEGFILGRASTIM
     Indication: INFECTION PROPHYLAXIS
     Route: 042
     Dates: start: 20160609, end: 20160610
  2. NEULASTA [Suspect]
     Active Substance: PEGFILGRASTIM
     Indication: FEBRILE NEUTROPENIA
     Route: 042
     Dates: start: 20160609, end: 20160610

REACTIONS (6)
  - Feeling hot [None]
  - Incorrect drug administration rate [None]
  - Injection site reaction [None]
  - Injection site pruritus [None]
  - Injection site pain [None]
  - Device malfunction [None]

NARRATIVE: CASE EVENT DATE: 20160610
